FAERS Safety Report 14524893 (Version 2)
Quarter: 2018Q1

REPORT INFORMATION
  Report Type: Report from Study
  Country: JP (occurrence: JP)
  Receive Date: 20180213
  Receipt Date: 20180315
  Transmission Date: 20180509
  Serious: Yes (Death, Life-Threatening, Hospitalization, Other)
  Sender: FDA-Public Use
  Company Number: JP-ASTELLAS-2017JP021627AA

PATIENT
  Age: 67 Year
  Sex: Female
  Weight: 44 kg

DRUGS (48)
  1. PHELLOBERIN [Concomitant]
     Active Substance: BERBERINE\GERANIUM
     Indication: DIARRHOEA
     Dosage: 1 DF, THRICE DAILY AFTER BREAKFAST, LUNCH AND SUPPER
     Route: 048
     Dates: start: 20171025, end: 20171108
  2. CUBICIN [Concomitant]
     Active Substance: DAPTOMYCIN
     Indication: DEVICE RELATED INFECTION
     Route: 042
     Dates: start: 20171128, end: 20171206
  3. ELEMENMIC [Concomitant]
     Active Substance: CUPRIC SULFATE\FERRIC CHLORIDE\MANGANESE CHLORIDE\POTASSIUM IODIDE\ZINC SULFATE
     Indication: MALNUTRITION
     Route: 042
     Dates: start: 20171209, end: 20171219
  4. NEOAMIYU [Concomitant]
     Active Substance: AMINO ACIDS
     Indication: MALNUTRITION
     Route: 042
     Dates: start: 20171209
  5. TEICOPLANIN [Concomitant]
     Active Substance: TEICOPLANIN
     Indication: PNEUMONIA
     Route: 042
     Dates: start: 20171219, end: 20171219
  6. POLYGLOBIN [Concomitant]
     Active Substance: HUMAN IMMUNOGLOBULIN G
     Indication: HYPOGAMMAGLOBULINAEMIA
     Dosage: UNKNOWN DOSE
     Route: 065
     Dates: start: 20171113, end: 20171113
  7. DOBUTREX [Concomitant]
     Active Substance: DOBUTAMINE HYDROCHLORIDE
     Indication: CARDIAC FAILURE
     Dosage: UNKNOWN DOSE
     Route: 065
     Dates: start: 20171129
  8. OXYGEN. [Concomitant]
     Active Substance: OXYGEN
     Indication: OXYGEN THERAPY
     Dosage: 1-2 L, CONTINUOUS
     Route: 065
  9. ASP2215 [Suspect]
     Active Substance: GILTERITINIB
     Indication: ACUTE MYELOID LEUKAEMIA
     Dosage: ASP2215 120MG OR PLACEBO, ONCE DAILY
     Route: 048
     Dates: start: 20171018, end: 20171101
  10. GRACEPTOR [Suspect]
     Active Substance: TACROLIMUS
     Indication: PROPHYLAXIS AGAINST GRAFT VERSUS HOST DISEASE
  11. BIOFERMIN                          /01617201/ [Concomitant]
     Active Substance: BACILLUS SUBTILIS\LACTOBACILLUS ACIDOPHILUS\STREPTOCOCCUS FAECAIS
     Indication: DIARRHOEA
     Dosage: 1 DF, THRICE DAILY AFTER BREAKFAST, LUNCH AND SUPPER
     Route: 048
     Dates: start: 20170726
  12. URSODEOXYCHOLIC ACID [Concomitant]
     Active Substance: URSODIOL
     Indication: PROPHYLAXIS
     Dosage: 200 MG, THRICE DAILY AFTER BREAKFAST, LUNCH AND SUPPER
     Route: 048
     Dates: start: 20171011, end: 20171108
  13. FUNGUARD [Concomitant]
     Active Substance: MICAFUNGIN SODIUM
     Indication: PNEUMONIA
     Dosage: UNKNOWN DOSE
     Route: 042
     Dates: start: 20171112, end: 20171116
  14. MEROPENEM                          /01250502/ [Concomitant]
     Active Substance: MEROPENEM
     Indication: PERITONITIS BACTERIAL
  15. DENOSINE                           /00090105/ [Concomitant]
     Active Substance: ADENOSINE TRIPHOSPHATE
     Indication: CYTOMEGALOVIRUS ENTEROCOLITIS
     Route: 042
     Dates: start: 20171120, end: 20171211
  16. HANP [Concomitant]
     Active Substance: CARPERITIDE
     Indication: CARDIAC FAILURE
     Dosage: UNKNOWN DOSE
     Route: 065
     Dates: start: 20171129
  17. OXYGEN. [Concomitant]
     Active Substance: OXYGEN
     Route: 065
  18. PREDNISOLONE. [Suspect]
     Active Substance: PREDNISOLONE
     Dosage: 20 MG, ONCE DAILY, AFTER BREAKFAST
     Route: 048
     Dates: start: 20171007
  19. NEXIUM [Concomitant]
     Active Substance: ESOMEPRAZOLE MAGNESIUM
     Indication: PROPHYLAXIS AGAINST GASTROINTESTINAL ULCER
     Dosage: 10 MG, ONCE DAILY, AFTER BREAKFAST
     Route: 048
     Dates: start: 20170328
  20. MEROPENEM                          /01250502/ [Concomitant]
     Active Substance: MEROPENEM
     Indication: PNEUMONIA
     Dosage: 0.5 G, TWICE DAILY
     Route: 042
     Dates: start: 20171117, end: 20171202
  21. CARBAZOCHROME SODIUM SULFONATE [Concomitant]
     Active Substance: CARBAZOCHROME SODIUM SULFONATE
     Indication: CYSTITIS HAEMORRHAGIC
     Route: 042
     Dates: start: 20171126, end: 20171219
  22. TRANEXAMIC ACID. [Concomitant]
     Active Substance: TRANEXAMIC ACID
     Indication: CYSTITIS HAEMORRHAGIC
     Route: 042
     Dates: start: 20171126, end: 20171219
  23. FUROSEMIDE. [Concomitant]
     Active Substance: FUROSEMIDE
     Indication: CARDIAC FAILURE
     Dosage: UNKNOWN DOSE
     Route: 065
     Dates: start: 20171129
  24. GRACEPTOR [Suspect]
     Active Substance: TACROLIMUS
     Indication: PROPHYLAXIS AGAINST TRANSPLANT REJECTION
     Dosage: 1.5 MG, ONCE DAILY, IN THE MORNING
     Route: 048
     Dates: start: 20171003, end: 20171122
  25. PREDNISOLONE. [Suspect]
     Active Substance: PREDNISOLONE
     Indication: GRAFT VERSUS HOST DISEASE
     Dosage: 0.5 MG/KG, ONCE DAILY
     Route: 048
     Dates: start: 20170817, end: 20170820
  26. BROTIZOLAM [Concomitant]
     Active Substance: BROTIZOLAM
     Indication: INSOMNIA
     Dosage: 0.25 MG, AT BEDTIME
     Route: 048
     Dates: start: 20171018
  27. VALIXA [Concomitant]
     Active Substance: VALGANCICLOVIR
     Indication: CYTOMEGALOVIRUS ENTEROCOLITIS
     Dosage: 450 MG, TWICE DAILY, AFTER BREAKFAST AND SUPPER
     Route: 048
     Dates: start: 20171028, end: 20171108
  28. KCL [Concomitant]
     Active Substance: POTASSIUM CHLORIDE
     Indication: HYPOKALAEMIA
     Dosage: 0.5 TUBE, ONCE DAILY
     Route: 042
     Dates: start: 20171122, end: 20171219
  29. PREDONINE                          /00016203/ [Concomitant]
     Active Substance: PREDNISOLONE SODIUM SUCCINATE
     Indication: GRAFT VERSUS HOST DISEASE IN SKIN
     Route: 042
     Dates: start: 20171128, end: 20171213
  30. FINIBAX [Concomitant]
     Active Substance: DORIPENEM MONOHYDRATE
     Indication: PNEUMONIA
     Dosage: 0.25 G, ONCE DAILY
     Route: 042
     Dates: start: 20171217, end: 20171219
  31. FOSCAVIR [Concomitant]
     Active Substance: FOSCARNET SODIUM
     Indication: CYTOMEGALOVIRUS ENTEROCOLITIS
     Dosage: UNKNOWN DOSE
     Route: 065
     Dates: end: 20171119
  32. ANTEBATE [Concomitant]
     Active Substance: BETAMETHASONE DIPROPIONATE
     Indication: GRAFT VERSUS HOST DISEASE
     Dosage: UNKNOWN DOSE
     Route: 065
     Dates: start: 20171205
  33. FLUCONAZOLE. [Concomitant]
     Active Substance: FLUCONAZOLE
     Indication: INFECTION PROPHYLAXIS
     Dosage: 200 MG, ONCE DAILY, AFTER BREAKFAST
     Route: 048
     Dates: start: 20170904, end: 20171112
  34. MAGNESIUM SULFATE HEPTAHYDRATE [Concomitant]
     Active Substance: MAGNESIUM SULFATE HEPTAHYDRATE
     Indication: HYPOMAGNESAEMIA
     Route: 042
     Dates: start: 20171121, end: 20171129
  35. OMEPRAZOLE                         /00661202/ [Concomitant]
     Active Substance: OMEPRAZOLE SODIUM
     Indication: PROPHYLAXIS AGAINST GASTROINTESTINAL ULCER
     Route: 042
     Dates: start: 20171128, end: 20171211
  36. VFEND [Concomitant]
     Active Substance: VORICONAZOLE
     Indication: PRODUCT USED FOR UNKNOWN INDICATION
     Dosage: UNKNOWN DOSE
     Route: 065
     Dates: start: 20171117
  37. ZOPICLONE [Concomitant]
     Active Substance: ZOPICLONE
     Indication: INSOMNIA
     Route: 048
     Dates: start: 20170904
  38. FUNGUARD [Concomitant]
     Active Substance: MICAFUNGIN SODIUM
     Indication: FUNGAL INFECTION
     Route: 042
     Dates: start: 20171123, end: 20171206
  39. VITAJECT                           /00176001/ [Concomitant]
     Active Substance: CYANOCOBALAMIN\PYRIDOXINE HYDROCHLORIDE\THIAMINE
     Indication: MALNUTRITION
     Dosage: 1 TUBE, ONCE DAILY
     Route: 042
     Dates: start: 20171209
  40. NONTHRON [Concomitant]
     Indication: ANTITHROMBIN III DECREASED
     Dosage: 1 V, ONCE DAILY
     Route: 042
     Dates: start: 20171218, end: 20171219
  41. SLOW-K [Concomitant]
     Active Substance: POTASSIUM CHLORIDE
     Indication: HYPOKALAEMIA
     Dosage: 1200 MG, TWICE DAILY AFTER BREAKFAST AND SUPPER
     Route: 048
     Dates: start: 20171025, end: 20171108
  42. FILGRASTIM [Concomitant]
     Active Substance: FILGRASTIM
     Indication: NEUTROPENIA
     Route: 058
     Dates: start: 20171117, end: 20171203
  43. ACELIO [Concomitant]
     Active Substance: ACETAMINOPHEN
     Indication: PYREXIA
     Dosage: 2000 MG/DAY, THRICE DAILY
     Route: 042
     Dates: start: 20171125, end: 20171211
  44. NONTHRON [Concomitant]
     Indication: THROMBOSIS PROPHYLAXIS
  45. AMBISOME [Concomitant]
     Active Substance: AMPHOTERICIN B
     Indication: BRONCHOPULMONARY ASPERGILLOSIS
     Dosage: UNKNOWN DOSE
     Route: 065
     Dates: start: 20171208, end: 20171208
  46. PREDNISOLONE. [Suspect]
     Active Substance: PREDNISOLONE
     Route: 048
     Dates: start: 20170821, end: 20171006
  47. PREDNISOLONE. [Suspect]
     Active Substance: PREDNISOLONE
     Route: 048
     Dates: start: 20171205, end: 20171215
  48. LEVOFLOXACIN HEMIHYDRATE [Concomitant]
     Active Substance: LEVOFLOXACIN
     Indication: INFECTION PROPHYLAXIS
     Dosage: 500 MG, ONCE DAILY AFTER BREAKFAST
     Route: 048
     Dates: start: 20170904, end: 20171114

REACTIONS (6)
  - Pneumonia [Fatal]
  - Febrile neutropenia [Recovered/Resolved]
  - Cytomegalovirus enterocolitis [Recovered/Resolved]
  - Pulmonary oedema [Not Recovered/Not Resolved]
  - Acute kidney injury [Not Recovered/Not Resolved]
  - Antithrombin III deficiency [Recovered/Resolved]

NARRATIVE: CASE EVENT DATE: 20171025
